FAERS Safety Report 9698544 (Version 2)
Quarter: 2014Q1

REPORT INFORMATION
  Report Type: Spontaneous
  Country: US (occurrence: US)
  Receive Date: 20131120
  Receipt Date: 20140129
  Transmission Date: 20141002
  Serious: Yes (Hospitalization)
  Sender: FDA-Public Use
  Company Number: US-GLAXOSMITHKLINE-A1050352A

PATIENT
  Age: 86 Year
  Sex: Female

DRUGS (1)
  1. PROMACTA [Suspect]
     Indication: BREAST CANCER
     Dosage: 25MG UNKNOWN
     Route: 065

REACTIONS (2)
  - Pneumonia [Unknown]
  - Platelet count increased [Unknown]
